FAERS Safety Report 25233627 (Version 4)
Quarter: 2025Q2

REPORT INFORMATION
  Report Type: Spontaneous
  Country: FR (occurrence: FR)
  Receive Date: 20250424
  Receipt Date: 20250624
  Transmission Date: 20250717
  Serious: Yes (Other)
  Sender: NOVARTIS
  Company Number: FR-002147023-NVSC2025FR066132

PATIENT
  Age: 37 Year
  Sex: Female

DRUGS (1)
  1. KESIMPTA [Suspect]
     Active Substance: OFATUMUMAB
     Indication: Multiple sclerosis
     Dosage: 20 MG, QMO (SINCE JAN OR FEB 2025)
     Route: 065

REACTIONS (11)
  - Nodular vasculitis [Unknown]
  - Vasodilatation [Unknown]
  - Tissue infiltration [Unknown]
  - Pain in extremity [Unknown]
  - Paraesthesia [Unknown]
  - Muscle contractions involuntary [Unknown]
  - Dry skin [Unknown]
  - Cyanosis [Unknown]
  - Erythrosis [Unknown]
  - Telangiectasia [Unknown]
  - Limb discomfort [Unknown]
